FAERS Safety Report 7487602-3 (Version None)
Quarter: 2011Q2

REPORT INFORMATION
  Report Type: 
  Country: None (occurrence: None)
  Receive Date: 20110518
  Receipt Date: 20101019
  Transmission Date: 20111010
  Serious: No
  Sender: FDA-Public Use
  Company Number: US-AMGEN-USASP2010000619

PATIENT
  Sex: Female

DRUGS (2)
  1. PROLIA [Suspect]
     Indication: OSTEOPOROSIS POSTMENOPAUSAL
     Dosage: 60 MG, Q6MO
     Dates: start: 20101001
  2. REMICADE [Concomitant]
     Indication: RHEUMATOID ARTHRITIS

REACTIONS (3)
  - MALAISE [None]
  - ARTHRALGIA [None]
  - TENSION [None]
